FAERS Safety Report 5278160-2 (Version None)
Quarter: 2007Q1

REPORT INFORMATION
  Report Type: 
  Country: None (occurrence: None)
  Receive Date: 20061213
  Receipt Date: 20060410
  Transmission Date: 20070707
  Serious: No
  Sender: FDA-Public Use
  Company Number: 2006UW04461

PATIENT
  Age: 34 Year
  Sex: Female
  Weight: 110.2241 kg

DRUGS (3)
  1. SEROQUEL [Suspect]
     Indication: BIPOLAR DISORDER
     Dosage: 600 MG DAILY PO
     Route: 048
     Dates: start: 20050701
  2. TOPAMAX [Concomitant]
  3. DEPAKOTE [Concomitant]

REACTIONS (1)
  - WEIGHT INCREASED [None]
